FAERS Safety Report 7704648-8 (Version None)
Quarter: 2011Q3

REPORT INFORMATION
  Report Type: 
  Country: None (occurrence: None)
  Receive Date: 20110823
  Receipt Date: 20110818
  Transmission Date: 20111222
  Serious: Yes (Hospitalization)
  Sender: FDA-Public Use
  Company Number: IT-GLAXOSMITHKLINE-B0741242A

PATIENT
  Sex: Male

DRUGS (6)
  1. LANOXIN [Suspect]
     Indication: MYOCARDIAL ISCHAEMIA
     Dosage: .125MG TWICE PER DAY
     Route: 048
     Dates: start: 20110101, end: 20110710
  2. ASPIRIN [Concomitant]
  3. LASIX [Concomitant]
     Dosage: 25MG PER DAY
  4. ALDACTONE [Concomitant]
  5. LANSOPRAZOL [Concomitant]
  6. DIAMICRON [Concomitant]

REACTIONS (3)
  - RENAL FAILURE ACUTE [None]
  - ATRIOVENTRICULAR BLOCK SECOND DEGREE [None]
  - OVERDOSE [None]
